FAERS Safety Report 5888375-8 (Version None)
Quarter: 2008Q3

REPORT INFORMATION
  Report Type: 
  Country: None (occurrence: None)
  Receive Date: 20080916
  Receipt Date: 20080905
  Transmission Date: 20090109
  Serious: Yes (Other)
  Sender: FDA-Public Use
  Company Number: GXKR2008GB08535

PATIENT
  Sex: Female

DRUGS (5)
  1. ACETYLSALICYLIC ACID SRT [Suspect]
  2. CARBAMAZEPINE [Suspect]
     Dosage: 200 MG, BID,
  3. LAMOTRIGINE [Suspect]
     Dosage: 100 MG, QD,
  4. HEPARIN [Suspect]
  5. ACETAZOLAMIDE [Suspect]
     Dosage: 250 MG,

REACTIONS (5)
  - ABORTION SPONTANEOUS [None]
  - DRUG EXPOSURE DURING PREGNANCY [None]
  - POSTPARTUM HAEMORRHAGE [None]
  - STILLBIRTH [None]
  - TWIN PREGNANCY [None]
